FAERS Safety Report 18306042 (Version 5)
Quarter: 2021Q3

REPORT INFORMATION
  Report Type: Spontaneous
  Country: CA (occurrence: CA)
  Receive Date: 20200923
  Receipt Date: 20210707
  Transmission Date: 20211014
  Serious: Yes (Other)
  Sender: FDA-Public Use
  Company Number: CA-CELLTRION INC.-2017CA015770

PATIENT

DRUGS (35)
  1. INFLECTRA [Suspect]
     Active Substance: INFLIXIMAB-DYYB
     Dosage: UNK
     Dates: start: 20190924
  2. INFLECTRA [Suspect]
     Active Substance: INFLIXIMAB-DYYB
     Dosage: 800 MG (EVERY 8 WEEKS)
     Route: 042
     Dates: start: 20210527
  3. HYDROCORTISONE. [Concomitant]
     Active Substance: HYDROCORTISONE
     Indication: PREMEDICATION
     Dosage: 200 MG
     Dates: start: 20200708, end: 20200708
  4. SUMATRIPTAN. [Concomitant]
     Active Substance: SUMATRIPTAN
     Indication: PREMEDICATION
     Dosage: 50 MG (1 HR PRIOR TO LEAVING HOME)
     Dates: start: 20200708, end: 20200708
  5. INFLECTRA [Suspect]
     Active Substance: INFLIXIMAB-DYYB
     Dosage: UNK
     Dates: start: 20200116
  6. INFLECTRA [Suspect]
     Active Substance: INFLIXIMAB-DYYB
     Dosage: 400 MG, (EVERY 8 WEEKS)
     Route: 042
     Dates: start: 20200312
  7. PREDNISONE. [Concomitant]
     Active Substance: PREDNISONE
     Dosage: 20 MG, DAILY(TAPERED DOSE)
     Dates: start: 201708
  8. FOLIC ACID. [Concomitant]
     Active Substance: FOLIC ACID
     Dosage: 5 MG, WEEKLY
     Route: 048
     Dates: start: 201708
  9. INFLECTRA [Suspect]
     Active Substance: INFLIXIMAB-DYYB
     Indication: CROHN^S DISEASE
     Dosage: 400 MG, (0, 2, 6 WEEKS THEN EVERY 8 WEEKS)
     Route: 042
     Dates: start: 20171124
  10. INFLECTRA [Suspect]
     Active Substance: INFLIXIMAB-DYYB
     Dosage: 400 MG, (0, 2, 6 WEEKS THEN EVERY 8 WEEKS)
     Route: 042
     Dates: start: 20180105
  11. INFLECTRA [Suspect]
     Active Substance: INFLIXIMAB-DYYB
     Dosage: 600 MG (EVERY 8 WEEKS)
     Route: 042
     Dates: start: 20200507
  12. INFLECTRA [Suspect]
     Active Substance: INFLIXIMAB-DYYB
     Dosage: 800 MG (EVERY 8 WEEKS)
     Route: 042
     Dates: start: 20201023
  13. INFLECTRA [Suspect]
     Active Substance: INFLIXIMAB-DYYB
     Dosage: 800 MG (EVERY 8 WEEKS)
     Route: 042
     Dates: start: 20201023
  14. SALBUTAMOL TEVA [Concomitant]
     Active Substance: ALBUTEROL
     Indication: NASOPHARYNGITIS
     Dosage: 2 PUFFS, AS NEEDED (ONCE PER YEAR PRN)
     Route: 065
  15. INFLECTRA [Suspect]
     Active Substance: INFLIXIMAB-DYYB
     Dosage: 600 MG (EVERY 8 WEEKS)
     Route: 042
     Dates: start: 20200116
  16. INFLECTRA [Suspect]
     Active Substance: INFLIXIMAB-DYYB
     Dosage: 400 MG, (0, 2, 6 WEEKS THEN EVERY 8 WEEKS)
     Route: 042
     Dates: start: 20180629
  17. INFLECTRA [Suspect]
     Active Substance: INFLIXIMAB-DYYB
     Dosage: UNK
     Dates: start: 20191121
  18. INFLECTRA [Suspect]
     Active Substance: INFLIXIMAB-DYYB
     Dosage: 600 MG (EVERY 8 WEEKS)
     Route: 042
     Dates: start: 20200708
  19. INFLECTRA [Suspect]
     Active Substance: INFLIXIMAB-DYYB
     Dosage: 600 MG (EVERY 8 WEEKS)
     Route: 042
     Dates: start: 20200831, end: 20200831
  20. INFLECTRA [Suspect]
     Active Substance: INFLIXIMAB-DYYB
     Dosage: 800 MG (EVERY 8 WEEKS)
     Route: 042
     Dates: start: 20201023
  21. DIPHENHYDRAMINE. [Concomitant]
     Active Substance: DIPHENHYDRAMINE
     Indication: PREMEDICATION
     Dosage: 50 MG
     Dates: start: 20200708, end: 20200708
  22. DIPHENHYDRAMINE. [Concomitant]
     Active Substance: DIPHENHYDRAMINE
     Dosage: 50 MG
     Route: 048
     Dates: start: 20200507, end: 20200507
  23. INFLECTRA [Suspect]
     Active Substance: INFLIXIMAB-DYYB
     Dosage: 400 MG, (EVERY 8 WEEKS)
     Route: 042
     Dates: start: 20181024
  24. PREDNISONE. [Concomitant]
     Active Substance: PREDNISONE
     Dosage: 20 MG TAPERED DOSE
     Route: 065
     Dates: start: 201708
  25. FLOVENT HFA [Concomitant]
     Active Substance: FLUTICASONE PROPIONATE
     Indication: NASOPHARYNGITIS
     Dosage: 1?5 MCG, AS NEEDED (ONCE PER YEAR PRN)
     Route: 065
  26. ACETAMINOPHEN. [Concomitant]
     Active Substance: ACETAMINOPHEN
     Dosage: 975 MG
     Route: 048
     Dates: start: 20200507, end: 20200507
  27. INFLECTRA [Suspect]
     Active Substance: INFLIXIMAB-DYYB
     Dosage: 400 MG, (EVERY 8 WEEKS)
     Route: 042
     Dates: start: 20180829
  28. INFLECTRA [Suspect]
     Active Substance: INFLIXIMAB-DYYB
     Dosage: UNK
     Dates: start: 20190211
  29. INFLECTRA [Suspect]
     Active Substance: INFLIXIMAB-DYYB
     Dosage: UNK
     Dates: start: 20190412
  30. INFLECTRA [Suspect]
     Active Substance: INFLIXIMAB-DYYB
     Dosage: UNK
     Dates: start: 20190730
  31. INFLECTRA [Suspect]
     Active Substance: INFLIXIMAB-DYYB
     Dosage: UNK
     Dates: start: 20190606
  32. METHOTREXATE. [Concomitant]
     Active Substance: METHOTREXATE
     Dosage: 12.5 MG, WEEKLY
     Route: 048
     Dates: start: 201708
  33. ACETAMINOPHEN. [Concomitant]
     Active Substance: ACETAMINOPHEN
     Indication: PREMEDICATION
     Dosage: 975 MG
     Dates: start: 20200708, end: 20200708
  34. HYDROCORTISONE. [Concomitant]
     Active Substance: HYDROCORTISONE
     Dosage: 200 MG
     Route: 042
     Dates: start: 20200507, end: 20200507
  35. SUMATRIPTAN. [Concomitant]
     Active Substance: SUMATRIPTAN
     Dosage: 50 MG (SELF?ADMINISTERED AT HOME)
     Route: 048
     Dates: start: 20200507, end: 20200507

REACTIONS (10)
  - Off label use [Unknown]
  - Off label use [Unknown]
  - Drug level below therapeutic [Unknown]
  - C-reactive protein increased [Not Recovered/Not Resolved]
  - Body temperature increased [Unknown]
  - Off label use [Unknown]
  - Pyrexia [Recovered/Resolved]
  - Weight decreased [Unknown]
  - Faecal calprotectin increased [Unknown]
  - Intentional product use issue [Unknown]

NARRATIVE: CASE EVENT DATE: 20200507
